FAERS Safety Report 8878829 (Version 2)
Quarter: 2013Q1

REPORT INFORMATION
  Report Type: Report from Study
  Country: GB (occurrence: GB)
  Receive Date: 20121026
  Receipt Date: 20130123
  Transmission Date: 20140127
  Serious: Yes (Death, Life-Threatening)
  Sender: FDA-Public Use
  Company Number: GB-ROCHE-1145542

PATIENT
  Sex: Male
  Weight: 87 kg

DRUGS (3)
  1. RITUXIMAB [Suspect]
     Indication: RHEUMATOID ARTHRITIS
     Route: 065
     Dates: start: 20090219
  2. STEROIDS (UNK INGREDIENTS) [Concomitant]
  3. METHOTREXATE [Concomitant]

REACTIONS (4)
  - Multi-organ failure [Fatal]
  - Pneumocystis jirovecii pneumonia [Fatal]
  - Vasculitis [Fatal]
  - Rheumatoid arthritis [Fatal]
